FAERS Safety Report 8062543-1 (Version None)
Quarter: 2012Q1

REPORT INFORMATION
  Report Type: 
  Country: None (occurrence: None)
  Receive Date: 20120118
  Receipt Date: 20120109
  Transmission Date: 20120608
  Serious: Yes (Other)
  Sender: FDA-Public Use
  Company Number: 2011MA001478

PATIENT
  Sex: Female
  Weight: 89.3586 kg

DRUGS (20)
  1. LEVASIN [Concomitant]
  2. METOCLOPRAMIDE [Suspect]
     Indication: GASTROOESOPHAGEAL REFLUX DISEASE
     Dosage: 10 MG;PO
     Route: 048
     Dates: start: 20090826, end: 20090930
  3. CYCLOBENZAPRINE [Concomitant]
  4. TETRACYCLINE [Concomitant]
  5. NEXIUM [Concomitant]
  6. LEVOTHYROXINE SODIUM [Concomitant]
  7. XYZAL [Concomitant]
  8. SINGULAIR [Concomitant]
  9. CIPROFLOXACIN [Concomitant]
  10. PHENERGAN [Concomitant]
  11. ASPIRIN [Concomitant]
  12. KLONOPIN [Concomitant]
  13. BENADRYL [Concomitant]
  14. ENABLEX [Concomitant]
  15. METRONIDAZOLE [Concomitant]
  16. ESTRADIOL [Concomitant]
  17. CELEBREX [Concomitant]
  18. RESTASIS [Concomitant]
  19. CLONAZEPAM [Concomitant]
  20. COGENTIN [Concomitant]

REACTIONS (24)
  - DRUG WITHDRAWAL SYNDROME [None]
  - ABDOMINAL PAIN [None]
  - TREMOR [None]
  - PANIC ATTACK [None]
  - VOMITING [None]
  - RESTLESSNESS [None]
  - HYPERHIDROSIS [None]
  - DYSTONIA [None]
  - GASTRITIS [None]
  - AKATHISIA [None]
  - DEPRESSION [None]
  - DECREASED APPETITE [None]
  - GASTROOESOPHAGEAL REFLUX DISEASE [None]
  - AGITATION [None]
  - OESOPHAGEAL ULCER [None]
  - EMOTIONAL DISORDER [None]
  - ENTERITIS [None]
  - NERVOUSNESS [None]
  - TARDIVE DYSKINESIA [None]
  - ANXIETY [None]
  - ECONOMIC PROBLEM [None]
  - NAUSEA [None]
  - FEAR [None]
  - TREATMENT NONCOMPLIANCE [None]
